APPROVED DRUG PRODUCT: PROZAC
Active Ingredient: FLUOXETINE HYDROCHLORIDE
Strength: EQ 20MG BASE/5ML **Federal Register determination that product was not discontinued or withdrawn for safety or effectiveness reasons**
Dosage Form/Route: SOLUTION;ORAL
Application: N020101 | Product #001
Applicant: ELI LILLY AND CO
Approved: Apr 24, 1991 | RLD: Yes | RS: No | Type: DISCN